FAERS Safety Report 24658817 (Version 1)
Quarter: 2024Q4

REPORT INFORMATION
  Report Type: Report from Study
  Country: US (occurrence: US)
  Receive Date: 20241125
  Receipt Date: 20241125
  Transmission Date: 20250115
  Serious: Yes (Hospitalization)
  Sender: GILEAD
  Company Number: US-GILEAD-2024-0694730

PATIENT
  Sex: Female

DRUGS (19)
  1. AZTREONAM LYSINE [Suspect]
     Active Substance: AZTREONAM LYSINE
     Indication: Product used for unknown indication
     Dosage: INHALE 75 MG 3 TIMES DAILY 28 DAYS ON 28 DAYS OFF
     Route: 055
     Dates: start: 20221119
  2. CARVEDILOL [Concomitant]
     Active Substance: CARVEDILOL
     Dosage: UNK
  3. PROGRAF [Concomitant]
     Active Substance: TACROLIMUS
  4. VITAMIN D3 [Concomitant]
     Active Substance: CHOLECALCIFEROL
  5. CELLCEPT [Concomitant]
     Active Substance: MYCOPHENOLATE MOFETIL
  6. BACTRIM [Concomitant]
     Active Substance: SULFAMETHOXAZOLE\TRIMETHOPRIM
  7. REGLAN [Concomitant]
     Active Substance: METOCLOPRAMIDE HYDROCHLORIDE
  8. ACYCLOVIR [Concomitant]
     Active Substance: ACYCLOVIR
  9. PREDNISONE [Concomitant]
     Active Substance: PREDNISONE
  10. LASIX [Concomitant]
     Active Substance: FUROSEMIDE
  11. VITAMIN C [Concomitant]
     Active Substance: ASCORBIC ACID
  12. MAGNESIUM [Concomitant]
     Active Substance: MAGNESIUM
  13. TYLENOL [Concomitant]
     Active Substance: ACETAMINOPHEN
  14. OXYGEN [Concomitant]
     Active Substance: OXYGEN
  15. FOSAMAX [Concomitant]
     Active Substance: ALENDRONATE SODIUM
  16. PRAVASTATIN SODIUM [Concomitant]
     Active Substance: PRAVASTATIN SODIUM
  17. VIT E [TOCOPHEROL] [Concomitant]
     Dosage: UNK MG
  18. ASPIRIN [Concomitant]
     Active Substance: ASPIRIN
  19. CALCIUM D3 [CALCIUM CARBONATE;COLECALCIFEROL] [Concomitant]

REACTIONS (1)
  - Respiratory tract infection [Unknown]
